FAERS Safety Report 17942332 (Version 1)
Quarter: 2020Q2

REPORT INFORMATION
  Report Type: Spontaneous
  Country: US (occurrence: US)
  Receive Date: 20200625
  Receipt Date: 20200625
  Transmission Date: 20200714
  Serious: Yes (Other)
  Sender: FDA-Public Use
  Company Number: None

PATIENT
  Age: 43 Year
  Sex: Female
  Weight: 80.1 kg

DRUGS (8)
  1. LYSINE [Concomitant]
     Active Substance: LYSINE
  2. VIT D [Concomitant]
     Active Substance: VITAMIN D NOS
  3. ADRENAL SUPPORT [Concomitant]
     Active Substance: HOMEOPATHICS
  4. COLAGEN [Concomitant]
  5. LIVER SUPPORT [Concomitant]
  6. NP THYROID [Suspect]
     Active Substance: LEVOTHYROXINE\LIOTHYRONINE
     Indication: HYPOTHYROIDISM
     Dosage: ?          QUANTITY:2 TABLET(S);?
     Route: 048
     Dates: start: 20191202, end: 20200507
  7. VIT A [Concomitant]
  8. ZYRTEC [Concomitant]
     Active Substance: CETIRIZINE HYDROCHLORIDE

REACTIONS (8)
  - Fatigue [None]
  - Mitral valve prolapse [None]
  - Asthenia [None]
  - Mitral valve incompetence [None]
  - Palpitations [None]
  - Paraesthesia [None]
  - Hot flush [None]
  - Chest pain [None]

NARRATIVE: CASE EVENT DATE: 20200427
